FAERS Safety Report 7428628-5 (Version None)
Quarter: 2011Q2

REPORT INFORMATION
  Report Type: 
  Country: None (occurrence: None)
  Receive Date: 20110421
  Receipt Date: 20110415
  Transmission Date: 20111010
  Serious: Yes (Hospitalization)
  Sender: FDA-Public Use
  Company Number: US-SANOFI-AVENTIS-2011SA024394

PATIENT
  Sex: Female

DRUGS (3)
  1. AMBIEN [Suspect]
     Dosage: HAD TAKEN AT LEAST 3 ZOLPIDEM ON 12-APR-2011
     Route: 048
     Dates: start: 20110301, end: 20110412
  2. CYCLOBENZAPRINE [Suspect]
     Route: 065
  3. TEMAZEPAM [Concomitant]

REACTIONS (5)
  - OVERDOSE [None]
  - HALLUCINATION [None]
  - MULTIPLE FRACTURES [None]
  - FALL [None]
  - CEREBRAL HAEMORRHAGE [None]
